FAERS Safety Report 21521736 (Version 2)
Quarter: 2022Q4

REPORT INFORMATION
  Report Type: Report from Study
  Country: US (occurrence: US)
  Receive Date: 20221028
  Receipt Date: 20221031
  Transmission Date: 20230112
  Serious: Yes (Hospitalization, Other)
  Sender: FDA-Public Use
  Company Number: US-ABBVIE-4176066

PATIENT
  Age: 19 Year
  Sex: Female
  Weight: 72.5 kg

DRUGS (5)
  1. SKYRIZI [Suspect]
     Active Substance: RISANKIZUMAB-RZAA
     Indication: Psoriasis
     Route: 058
  2. Moderna Covid19 vaccine [Concomitant]
     Indication: COVID-19 immunisation
     Dosage: MODERNA
     Route: 030
  3. Moderna Covid19 vaccine [Concomitant]
     Indication: COVID-19 immunisation
     Dosage: MODERNA SHOT 2
     Route: 030
  4. Moderna Covid19 vaccine [Concomitant]
     Indication: COVID-19 immunisation
     Dosage: BOOSTER
     Route: 030
  5. Moderna Covid19 vaccine [Concomitant]
     Indication: COVID-19 immunisation
     Dosage: BOOSTER
     Route: 030

REACTIONS (3)
  - Circumstance or information capable of leading to medication error [Recovered/Resolved]
  - Trisomy 21 [Not Recovered/Not Resolved]
  - Leukaemia [Unknown]

NARRATIVE: CASE EVENT DATE: 20221017
